FAERS Safety Report 15280878 (Version 1)
Quarter: 2018Q3

REPORT INFORMATION
  Report Type: Spontaneous
  Country: US (occurrence: US)
  Receive Date: 20180815
  Receipt Date: 20180815
  Transmission Date: 20181010
  Serious: No
  Sender: FDA-Public Use
  Company Number: US-SYNERGY PHARMACEUTICALS INC-US-2018SNG000110

PATIENT

DRUGS (3)
  1. LINZESS [Concomitant]
     Active Substance: LINACLOTIDE
     Indication: IRRITABLE BOWEL SYNDROME
     Dosage: 290 MG, QD
     Route: 048
  2. TRULANCE [Suspect]
     Active Substance: PLECANATIDE
     Indication: IRRITABLE BOWEL SYNDROME
     Dosage: 3 MG, QD
     Route: 048
     Dates: start: 20180424
  3. PRAVASTATIN. [Concomitant]
     Active Substance: PRAVASTATIN
     Indication: BLOOD CHOLESTEROL
     Dosage: 20 MG, QD
     Route: 048

REACTIONS (6)
  - Dyspnoea [Recovered/Resolved]
  - Sleep disorder [Unknown]
  - Cardiac disorder [Recovered/Resolved]
  - Anxiety [Unknown]
  - Chest discomfort [Recovered/Resolved]
  - Rash erythematous [Not Recovered/Not Resolved]

NARRATIVE: CASE EVENT DATE: 20180424
